FAERS Safety Report 4464214-7 (Version None)
Quarter: 2004Q4

REPORT INFORMATION
  Report Type: 
  Country: None (occurrence: None)
  Receive Date: 20041001
  Receipt Date: 20040819
  Transmission Date: 20050328
  Serious: Yes (Hospitalization)
  Sender: FDA-Public Use
  Company Number: JP-GLAXOSMITHKLINE-B0343371A

PATIENT
  Age: 35 Year
  Sex: Male
  Weight: 53 kg

DRUGS (7)
  1. FLUTICASONE PROPIONATE [Suspect]
     Indication: ASTHMA
     Dosage: 200MCG TWICE PER DAY
     Route: 048
     Dates: start: 20010122, end: 20020803
  2. FLUTIDE DISKUS [Suspect]
     Indication: ASTHMA
     Dosage: 400MCG TWICE PER DAY
     Route: 055
     Dates: start: 20020803
  3. PREDONINE [Suspect]
     Route: 065
     Dates: start: 20010131
  4. UNIPHYL [Concomitant]
     Indication: ASTHMA
     Dosage: 400MG PER DAY
     Route: 048
     Dates: start: 20001116
  5. KIPRES [Concomitant]
     Indication: ASTHMA
     Dosage: 10MG PER DAY
     Route: 048
     Dates: start: 20011222
  6. MEPTIN AIR [Concomitant]
     Indication: ASTHMA
     Route: 055
     Dates: start: 20001015
  7. SEREVENT [Concomitant]
     Indication: ASTHMA
     Dosage: 100MCG PER DAY
     Route: 055
     Dates: start: 20030125

REACTIONS (4)
  - BLOOD IMMUNOGLOBULIN E INCREASED [None]
  - BRONCHOPULMONARY ASPERGILLOSIS [None]
  - BRONCHOPULMONARY ASPERGILLOSIS ALLERGIC [None]
  - DYSPNOEA [None]
